FAERS Safety Report 7506979-3 (Version None)
Quarter: 2011Q2

REPORT INFORMATION
  Report Type: 
  Country: None (occurrence: None)
  Receive Date: 20110410
  Receipt Date: 20110211
  Transmission Date: 20111010
  Serious: Yes (Other)
  Sender: FDA-Public Use
  Company Number: 803491

PATIENT
  Age: 47 Year
  Sex: Male
  Weight: 88.18 kg

DRUGS (4)
  1. OXALIPLATIN [Suspect]
     Indication: CHEMOTHERAPY
     Dosage: 125ML/HR, PORT, OTHER
     Route: 050
     Dates: start: 20101203, end: 20101203
  2. OXALIPLATIN [Suspect]
     Indication: CHEMOTHERAPY
     Dosage: 125ML/HR, PORT, OTHER
     Route: 050
     Dates: start: 20101203, end: 20101203
  3. OXALIPLATIN [Suspect]
     Indication: CHEMOTHERAPY
     Dosage: 125ML/HR, PORT, OTHER
     Route: 050
     Dates: start: 20101203, end: 20101203
  4. OXALIPLATIN [Suspect]
     Indication: CHEMOTHERAPY
     Dosage: 125ML/HR, PORT, OTHER
     Route: 050
     Dates: start: 20101203, end: 20101203

REACTIONS (2)
  - ERYTHEMA [None]
  - URTICARIA [None]
